FAERS Safety Report 9838334 (Version 2)
Quarter: 2014Q1

REPORT INFORMATION
  Report Type: Report from Study
  Country: US (occurrence: US)
  Receive Date: 20140123
  Receipt Date: 20140217
  Transmission Date: 20141002
  Serious: Yes (Other)
  Sender: FDA-Public Use
  Company Number: US-BAYER-2014-011110

PATIENT
  Age: 72 Year
  Sex: Female

DRUGS (1)
  1. NEXAVAR [Suspect]
     Indication: THYROID CANCER
     Dosage: DOSE REGIMEN: 4X200MG
     Route: 048
     Dates: start: 20140116

REACTIONS (6)
  - Fatigue [None]
  - Dry mouth [None]
  - Choking [None]
  - Cough [None]
  - Vomiting [None]
  - Oral discomfort [None]
